FAERS Safety Report 19482940 (Version 1)
Quarter: 2021Q3

REPORT INFORMATION
  Report Type: Report from Study
  Country: US (occurrence: US)
  Receive Date: 20210701
  Receipt Date: 20210701
  Transmission Date: 20211014
  Serious: No
  Sender: FDA-Public Use
  Company Number: US-KYOWAKIRIN-2021BKK011078

PATIENT

DRUGS (1)
  1. GRANISETRON [Suspect]
     Active Substance: GRANISETRON
     Indication: PRODUCT USED FOR UNKNOWN INDICATION
     Dosage: UNK
     Route: 061
     Dates: start: 20210416

REACTIONS (3)
  - Drug intolerance [Unknown]
  - Ill-defined disorder [Unknown]
  - Rash [Unknown]

NARRATIVE: CASE EVENT DATE: 20210616
